FAERS Safety Report 8932636 (Version 1)
Quarter: 2012Q4

REPORT INFORMATION
  Report Type: Report from Study
  Country: CA (occurrence: CA)
  Receive Date: 20121129
  Receipt Date: 20121129
  Transmission Date: 20130627
  Serious: Yes (Other)
  Sender: FDA-Public Use
  Company Number: CA-JNJFOC-20121111247

PATIENT
  Age: 32 Year
  Sex: Male
  Weight: 94 kg

DRUGS (2)
  1. REMICADE [Suspect]
     Indication: ANKYLOSING SPONDYLITIS
     Route: 042
     Dates: start: 20110408
  2. NAPROXEN [Concomitant]
     Route: 065

REACTIONS (1)
  - Burns second degree [Unknown]
